FAERS Safety Report 10264147 (Version 1)
Quarter: 2014Q2

REPORT INFORMATION
  Report Type: Report from Study
  Country: US (occurrence: US)
  Receive Date: 20140627
  Receipt Date: 20140627
  Transmission Date: 20141212
  Serious: Yes (Death)
  Sender: FDA-Public Use
  Company Number: US-BRISTOL-MYERS SQUIBB COMPANY-21085782

PATIENT
  Age: 68 Year
  Sex: Female

DRUGS (1)
  1. BELATACEPT [Suspect]
     Indication: RENAL TRANSPLANT

REACTIONS (4)
  - Dehydration [Fatal]
  - Malnutrition [Fatal]
  - Decreased appetite [Fatal]
  - Nausea [Fatal]
